FAERS Safety Report 5381296-9 (Version None)
Quarter: 2007Q3

REPORT INFORMATION
  Report Type: 
  Country: None (occurrence: None)
  Receive Date: 20070708
  Receipt Date: 20070702
  Transmission Date: 20080115
  Serious: Yes (Other)
  Sender: FDA-Public Use
  Company Number: GB-BRACCO-BRO-011774

PATIENT
  Age: 44 Year
  Sex: Female

DRUGS (2)
  1. MULTIHANCE [Suspect]
     Indication: ENDOMETRIAL HYPERPLASIA
     Route: 042
     Dates: start: 20070605, end: 20070605
  2. MULTIHANCE [Suspect]
     Route: 042
     Dates: start: 20070605, end: 20070605

REACTIONS (4)
  - DYSKINESIA [None]
  - INCONTINENCE [None]
  - LOSS OF CONSCIOUSNESS [None]
  - URINARY INCONTINENCE [None]
